FAERS Safety Report 5496915-6 (Version None)
Quarter: 2007Q4

REPORT INFORMATION
  Report Type: 
  Country: None (occurrence: None)
  Receive Date: 20071023
  Receipt Date: 20071009
  Transmission Date: 20080405
  Serious: Yes (Hospitalization, Other)
  Sender: FDA-Public Use
  Company Number: 162571ISR

PATIENT
  Age: 76 Year
  Sex: Female

DRUGS (2)
  1. IBUPROFEN [Suspect]
     Indication: OSTEOARTHRITIS
  2. CALCIUM CARBONATE [Suspect]
     Indication: DYSPEPSIA
     Dosage: (5.5 GRAM)
     Route: 048

REACTIONS (9)
  - CHANGE OF BOWEL HABIT [None]
  - CONSTIPATION [None]
  - DIARRHOEA [None]
  - DYSPEPSIA [None]
  - GASTRITIS EROSIVE [None]
  - MILK-ALKALI SYNDROME [None]
  - NOCTURIA [None]
  - POLYDIPSIA [None]
  - POLYURIA [None]
